FAERS Safety Report 6204129-7 (Version None)
Quarter: 2009Q2

REPORT INFORMATION
  Report Type: 
  Country: None (occurrence: None)
  Receive Date: 20090527
  Receipt Date: 20090520
  Transmission Date: 20091009
  Serious: Yes (Hospitalization, Other)
  Sender: FDA-Public Use
  Company Number: CN-ABBOTT-09P-035-0574552-00

PATIENT
  Age: 41 Year
  Sex: Male

DRUGS (4)
  1. CYCLOSPORINE [Suspect]
     Indication: SYSTEMIC SCLEROSIS
     Dates: start: 20051201, end: 20060101
  2. D-PENICILLAMINE [Concomitant]
     Indication: SYSTEMIC SCLEROSIS
  3. D-PENICILLAMINE [Concomitant]
  4. METHYLPREDNISOLONE [Concomitant]
     Dosage: PULSE THERAPY
     Dates: start: 20050901

REACTIONS (3)
  - ANGIOPATHY [None]
  - GLOMERULONEPHRITIS [None]
  - HAEMOLYTIC URAEMIC SYNDROME [None]
